FAERS Safety Report 4890525-7 (Version None)
Quarter: 2006Q1

REPORT INFORMATION
  Report Type: 
  Country: None (occurrence: None)
  Receive Date: 20060123
  Receipt Date: 20060103
  Transmission Date: 20060701
  Serious: Yes (Other)
  Sender: FDA-Public Use
  Company Number: US200601000475

PATIENT
  Age: 37 Year
  Sex: Female

DRUGS (3)
  1. HUMULIN 70/30 [Suspect]
     Indication: DIABETES MELLITUS
     Dates: start: 20060129
  2. HUMULIN R [Suspect]
     Indication: DIABETES MELLITUS
     Dates: start: 19950101, end: 20050101
  3. HUMULIN N [Suspect]
     Indication: DIABETES MELLITUS
     Dates: start: 19950101, end: 20050101

REACTIONS (2)
  - BLOOD GLUCOSE INCREASED [None]
  - CARPAL TUNNEL SYNDROME [None]
